FAERS Safety Report 5968924-1 (Version None)
Quarter: 2008Q4

REPORT INFORMATION
  Report Type: 
  Country: None (occurrence: None)
  Receive Date: 20081125
  Receipt Date: 20081125
  Transmission Date: 20090506
  Serious: Yes (Other)
  Sender: FDA-Public Use
  Company Number: None

PATIENT
  Sex: Female
  Weight: 99.7913 kg

DRUGS (1)
  1. PROAIR HFA [Suspect]
     Indication: ASTHMA
     Dosage: 2 PUFFS Q 4HR PRN INHAL, CONTINUOUS
     Route: 055
     Dates: start: 20081101, end: 20081124

REACTIONS (2)
  - CANDIDIASIS [None]
  - DRUG INEFFECTIVE [None]
